FAERS Safety Report 12782820 (Version 1)
Quarter: 2016Q3

REPORT INFORMATION
  Report Type: Spontaneous
  Country: GB (occurrence: None)
  Receive Date: 20160926
  Receipt Date: 20160926
  Transmission Date: 20161109
  Serious: Yes (Disabling)
  Sender: FDA-Public Use
  Company Number: GB2016K4915SPO

PATIENT
  Age: 74 Year
  Sex: Male

DRUGS (7)
  1. ATORVASTATIN [Concomitant]
     Active Substance: ATORVASTATIN
  2. LANSOPRAZOLE GENERIC (LANSOPRAZOLE) UNKNOWN [Suspect]
     Active Substance: LANSOPRAZOLE
     Indication: PROPHYLAXIS AGAINST GASTROINTESTINAL ULCER
     Dates: start: 201508, end: 201510
  3. HALOPERIDOL. [Concomitant]
     Active Substance: HALOPERIDOL
  4. LOPRAZOLAM [Concomitant]
     Active Substance: LOPRAZOLAM
  5. COLCHICINE. [Concomitant]
     Active Substance: COLCHICINE
  6. PARACETAMOL [Concomitant]
     Active Substance: ACETAMINOPHEN
  7. NAPROXEN. [Concomitant]
     Active Substance: NAPROXEN

REACTIONS (17)
  - Decreased appetite [None]
  - Flatulence [None]
  - Dizziness [None]
  - Gastritis [None]
  - Abnormal faeces [None]
  - Abnormal loss of weight [None]
  - Dry mouth [None]
  - Change of bowel habit [None]
  - Vomiting [None]
  - Fatigue [None]
  - Pruritus [None]
  - Diarrhoea [None]
  - Skin haemorrhage [None]
  - Liver function test abnormal [None]
  - Nausea [None]
  - Haemoglobin decreased [None]
  - Diverticulum [None]

NARRATIVE: CASE EVENT DATE: 201509
